FAERS Safety Report 9124026 (Version 1)
Quarter: 2013Q1

REPORT INFORMATION
  Report Type: Report from Study
  Country: US (occurrence: US)
  Receive Date: 20130227
  Receipt Date: 20130227
  Transmission Date: 20140127
  Serious: Yes (Hospitalization)
  Sender: FDA-Public Use
  Company Number: US-ACTELION-A-NJ2013-79785

PATIENT
  Age: 69 Year
  Sex: Female

DRUGS (4)
  1. TRACLEER [Suspect]
     Indication: PULMONARY ARTERIAL HYPERTENSION
     Dosage: 125 MG, BID
     Route: 048
     Dates: start: 200810
  2. REVATIO [Concomitant]
  3. REMODULIN [Concomitant]
  4. OXYGEN [Concomitant]

REACTIONS (5)
  - Cardiac disorder [Unknown]
  - Puncture site infection [Unknown]
  - Pneumonia [Unknown]
  - Dyspnoea [Unknown]
  - Diabetes mellitus [Unknown]
